FAERS Safety Report 14958396 (Version 1)
Quarter: 2018Q2

REPORT INFORMATION
  Report Type: Spontaneous
  Country: US (occurrence: US)
  Receive Date: 20180531
  Receipt Date: 20180531
  Transmission Date: 20180711
  Serious: No
  Sender: FDA-Public Use
  Company Number: US-BAYER-2018-096521

PATIENT
  Age: 65 Year
  Sex: Male

DRUGS (1)
  1. STIVARGA [Suspect]
     Active Substance: REGORAFENIB
     Dosage: 160 MG, DAILY
     Route: 048

REACTIONS (1)
  - Abdominal pain [Recovering/Resolving]

NARRATIVE: CASE EVENT DATE: 201804
